FAERS Safety Report 11044070 (Version 1)
Quarter: 2015Q2

REPORT INFORMATION
  Report Type: Spontaneous
  Country: CA (occurrence: CA)
  Receive Date: 20150417
  Receipt Date: 20150417
  Transmission Date: 20150821
  Serious: Yes (Other)
  Sender: FDA-Public Use
  Company Number: CA-TEVA-555241ACC

PATIENT
  Age: 37 Year
  Sex: Female
  Weight: 77.18 kg

DRUGS (2)
  1. OLANZAPINE. [Suspect]
     Active Substance: OLANZAPINE
     Indication: SCHIZOPHRENIFORM DISORDER
     Route: 048
  2. TRAZODONE [Concomitant]
     Active Substance: TRAZODONE HYDROCHLORIDE
     Dosage: UNKNOWN DOSE STRENGTH
     Route: 065

REACTIONS (3)
  - Pruritus [Recovered/Resolved]
  - Product substitution issue [Recovered/Resolved]
  - Irritability [Recovered/Resolved]
